FAERS Safety Report 15852526 (Version 1)
Quarter: 2019Q1

REPORT INFORMATION
  Report Type: Spontaneous
  Country: DE (occurrence: DE)
  Receive Date: 20190122
  Receipt Date: 20190122
  Transmission Date: 20190417
  Serious: Yes (Death, Hospitalization, Other)
  Sender: FDA-Public Use
  Company Number: DE-AUROBINDO-AUR-APL-2019-002291

PATIENT
  Age: 74 Year
  Sex: Female
  Weight: 54 kg

DRUGS (21)
  1. OXALIPLATIN. [Suspect]
     Active Substance: OXALIPLATIN
     Indication: COLORECTAL CANCER
     Dosage: 150 MILLIGRAM
     Route: 042
     Dates: start: 20130719, end: 20130920
  2. FOLINIC ACID [Suspect]
     Active Substance: LEUCOVORIN
     Indication: COLORECTAL CANCER
     Dosage: 300 MILLIGRAM, MOST RECENT DOSE ON 30/AUG/2013
     Route: 042
     Dates: start: 20130719, end: 20140121
  3. CETUXIMAB. [Suspect]
     Active Substance: CETUXIMAB
     Indication: COLORECTAL CANCER
     Dosage: 400 MILLIGRAM, 400-650 MG
     Route: 042
     Dates: start: 20131011, end: 20131206
  4. MORPHINE                           /00036302/ [Concomitant]
     Active Substance: MORPHINE
     Indication: PAIN
     Dosage: 24 MILLIGRAM
     Route: 042
     Dates: start: 20140125, end: 20140128
  5. TAVOR (LORAZEPAM) [Concomitant]
     Active Substance: LORAZEPAM
     Indication: PRODUCT USED FOR UNKNOWN INDICATION
     Dosage: 2 MILLIGRAM, AS NECESSARY
     Route: 065
     Dates: end: 20140128
  6. 5-FLUOROURACIL                     /00098801/ [Suspect]
     Active Substance: FLUOROURACIL
     Indication: COLORECTAL CANCER
     Dosage: 700 UNK, MOST RECENT DOSE ON 30/AUG/2013
     Route: 042
     Dates: start: 20130719, end: 20140121
  7. JONOSTERIL                         /00351401/ [Concomitant]
     Active Substance: CALCIUM ACETATE\MAGNESIUM ACETATE\POTASSIUM ACETATE\SODIUM ACETATE\SODIUM CHLORI
     Indication: PRODUCT USED FOR UNKNOWN INDICATION
     Dosage: 500 MILLILITER
     Route: 042
     Dates: start: 20140125, end: 20140128
  8. SPIRONOLACTON [Concomitant]
     Active Substance: SPIRONOLACTONE
     Indication: OEDEMA
     Dosage: 25 MILLIGRAM
     Route: 048
     Dates: end: 20140125
  9. 5-FLUOROURACIL                     /00098801/ [Suspect]
     Active Substance: FLUOROURACIL
     Dosage: 1000 MILLIGRAM
     Route: 042
     Dates: start: 20130719, end: 20140122
  10. PANITUMUMAB [Suspect]
     Active Substance: PANITUMUMAB
     Indication: COLORECTAL CANCER
     Dosage: 300 MILLIGRAM, 300-350 MG
     Route: 042
     Dates: start: 20131230, end: 20140121
  11. MORPHINE                           /00036302/ [Concomitant]
     Active Substance: MORPHINE
     Dosage: 20 MILLIGRAM
     Route: 048
     Dates: end: 20140125
  12. ALIZAPRIDE [Concomitant]
     Active Substance: ALIZAPRIDE
     Indication: NAUSEA
     Dosage: 300 MILLIGRAM, ONCE A DAY
     Route: 048
  13. IBUPROFEN. [Concomitant]
     Active Substance: IBUPROFEN
     Indication: PAIN
     Dosage: 1800 MILLIGRAM, ONCE A DAY
     Route: 048
  14. ONDANSETRON [Concomitant]
     Active Substance: ONDANSETRON
     Indication: NAUSEA
     Dosage: UNK
     Route: 065
  15. IRINOTECAN [Suspect]
     Active Substance: IRINOTECAN
     Indication: COLORECTAL CANCER
     Dosage: 250 MILLIGRAM, 250-300 MG
     Route: 042
     Dates: start: 20131011, end: 20131129
  16. BEVACIZUMAB. [Suspect]
     Active Substance: BEVACIZUMAB
     Indication: COLORECTAL CANCER
     Dosage: 275 MILLIGRAM, MOST RECENT DOSE ON 30/AUG/2013
     Route: 042
     Dates: start: 20130719, end: 20130920
  17. PANTOPRAZOL                        /01263201/ [Concomitant]
     Active Substance: PANTOPRAZOLE
     Indication: PROPHYLAXIS
     Dosage: 40 MILLIGRAM, ONCE A DAY
     Route: 048
     Dates: end: 20140125
  18. SODIUM PICOSULFATE [Concomitant]
     Active Substance: SODIUM PICOSULFATE
     Indication: CONSTIPATION
     Dosage: 1 UNK, TWO TIMES A DAY
     Route: 048
     Dates: end: 20140125
  19. OXALIPLATIN. [Suspect]
     Active Substance: OXALIPLATIN
     Dosage: 130 MILLIGRAM
     Route: 042
     Dates: start: 20131230
  20. METOCLOPRAMID                      /00041901/ [Concomitant]
     Active Substance: METOCLOPRAMIDE
     Indication: NAUSEA
     Dosage: 12 MILLIGRAM, ONCE A DAY
     Route: 048
  21. L-THYROXIN                         /00068001/ [Concomitant]
     Active Substance: LEVOTHYROXINE
     Indication: HYPOTHYROIDISM
     Dosage: 75 MICROGRAM
     Route: 048
     Dates: end: 20140125

REACTIONS (10)
  - Diarrhoea [Recovering/Resolving]
  - Hepatic lesion [Fatal]
  - Urinary tract disorder [Recovering/Resolving]
  - Coma [Unknown]
  - Epilepsy [Unknown]
  - Metastases to liver [Fatal]
  - Blood creatinine increased [Recovering/Resolving]
  - Blood alkaline phosphatase increased [Unknown]
  - Renal disorder [Recovering/Resolving]
  - Posterior reversible encephalopathy syndrome [Fatal]

NARRATIVE: CASE EVENT DATE: 20130830
